FAERS Safety Report 14684519 (Version 34)
Quarter: 2020Q1

REPORT INFORMATION
  Report Type: Report from Study
  Country: JP (occurrence: JP)
  Receive Date: 20180327
  Receipt Date: 20200324
  Transmission Date: 20200409
  Serious: Yes (Hospitalization, Other)
  Sender: FDA-Public Use
  Company Number: JP-ASTELLAS-2018JP000762

PATIENT
  Age: 68 Year
  Sex: Male
  Weight: 59 kg

DRUGS (43)
  1. GASTER [Concomitant]
     Active Substance: FAMOTIDINE
     Route: 048
     Dates: start: 20181227, end: 20190912
  2. BENZETHONIUM CHLORIDE [Concomitant]
     Active Substance: BENZETHONIUM CHLORIDE
     Dosage: UNK UNK, UNKNOWN FREQ.
     Route: 061
     Dates: start: 20180327, end: 20190223
  3. OPTIRAY 320 [Concomitant]
     Active Substance: IOVERSOL
     Indication: COMPUTERISED TOMOGRAM
     Dosage: UNK UNK, UNKNOWN FREQ.
     Route: 065
     Dates: start: 20180501, end: 20200227
  4. AZULFIDINE EN-TABS [Concomitant]
     Active Substance: SULFASALAZINE
     Indication: RHEUMATOID ARTHRITIS
     Route: 048
     Dates: start: 20180823, end: 20190912
  5. AZULFIDINE EN-TABS [Concomitant]
     Active Substance: SULFASALAZINE
     Dosage: UNK, UNKNOWN FREQ.
     Route: 048
     Dates: start: 20190918
  6. ENZALUTAMIDE [Suspect]
     Active Substance: ENZALUTAMIDE
     Route: 048
     Dates: start: 20190918, end: 20200227
  7. CLARITHROMYCIN. [Concomitant]
     Active Substance: CLARITHROMYCIN
     Indication: GINGIVITIS
     Dosage: UNK UNK, UNKNOWN FREQ.
     Route: 048
     Dates: start: 20170303, end: 20170309
  8. AMLODIPINE [Concomitant]
     Active Substance: AMLODIPINE BESYLATE
     Indication: HYPERTENSION
     Route: 048
     Dates: start: 20190305, end: 20190912
  9. CELECOX [Concomitant]
     Active Substance: CELECOXIB
     Indication: RHEUMATOID ARTHRITIS
     Route: 048
     Dates: start: 20150625, end: 20181226
  10. ISOTONIC SODIUM CHLORIDE SOLUTION [Concomitant]
     Active Substance: SODIUM CHLORIDE
     Indication: ANAEMIA
     Dosage: UNK UNK, UNKNOWN FREQ.
     Route: 041
     Dates: start: 20180322, end: 20180322
  11. ORTEXER [Concomitant]
     Indication: GINGIVITIS
     Dosage: UNK UNK, UNKNOWN FREQ.
     Route: 061
     Dates: start: 20180323, end: 20180326
  12. ACTEMRA [Concomitant]
     Active Substance: TOCILIZUMAB
     Indication: RHEUMATOID ARTHRITIS
     Route: 058
     Dates: start: 20181206
  13. METOLATE [Suspect]
     Active Substance: METHOTREXATE
     Indication: RHEUMATOID ARTHRITIS
     Route: 048
     Dates: start: 20171207, end: 20180322
  14. ISOTONIC SODIUM CHLORIDE SOLUTION [Concomitant]
     Active Substance: SODIUM CHLORIDE
     Indication: GINGIVITIS
     Dosage: UNK UNK, UNKNOWN FREQ.
     Route: 041
     Dates: start: 20170226, end: 20170302
  15. CLEAR BONE [TECHNETIUM TC 99M OXIDRONATE] [Concomitant]
     Indication: BONE SCAN
     Dosage: UNK UNK, UNKNOWN FREQ.
     Route: 065
     Dates: start: 20170802, end: 20200227
  16. IOPAMIDOL [Concomitant]
     Active Substance: IOPAMIDOL
     Indication: COMPUTERISED TOMOGRAM
     Dosage: UNK UNK, UNKNOWN FREQ.
     Route: 065
     Dates: start: 20170802, end: 20180125
  17. LOXONIN [Concomitant]
     Active Substance: LOXOPROFEN SODIUM
     Indication: PAIN
     Route: 048
     Dates: start: 20171201, end: 20171205
  18. HUMAN RED BLOOD CELLS [Concomitant]
     Active Substance: HUMAN RED BLOOD CELL
     Indication: PANCYTOPENIA
  19. ISCOTIN [Concomitant]
     Active Substance: ISONIAZID
     Indication: ANTIBIOTIC PROPHYLAXIS
     Dosage: UNK UNK, UNKNOWN FREQ.
     Route: 048
     Dates: start: 20181004, end: 20190620
  20. AMLODIPINE [Concomitant]
     Active Substance: AMLODIPINE BESYLATE
     Dosage: UNK, UNKNOWN FREQ.
     Route: 048
     Dates: start: 20190918
  21. METOLATE [Suspect]
     Active Substance: METHOTREXATE
     Route: 048
     Dates: start: 20180705, end: 20180809
  22. GASTER [Concomitant]
     Active Substance: FAMOTIDINE
     Dosage: UNK, UNKNOWN FREQ.
     Route: 048
     Dates: start: 20190918, end: 20191017
  23. LOXOPROFEN NA [Concomitant]
     Active Substance: LOXOPROFEN SODIUM
     Indication: RHEUMATOID ARTHRITIS
     Route: 050
     Dates: start: 20161222
  24. LEUPLIN [Concomitant]
     Active Substance: LEUPROLIDE ACETATE
     Indication: HORMONE-REFRACTORY PROSTATE CANCER
     Route: 058
     Dates: start: 20170511
  25. NIFEDIPINE. [Concomitant]
     Active Substance: NIFEDIPINE
     Indication: HYPERTENSION
     Dosage: UNK UNK, UNKNOWN FREQ.
     Route: 048
     Dates: start: 20181217, end: 20181225
  26. RHEUMATREX [Concomitant]
     Active Substance: METHOTREXATE SODIUM
     Indication: RHEUMATOID ARTHRITIS
     Dosage: UNK UNK, UNKNOWN FREQ.
     Route: 048
     Dates: end: 20171206
  27. GASTER [Concomitant]
     Active Substance: FAMOTIDINE
     Indication: PROPHYLAXIS AGAINST GASTROINTESTINAL ULCER
     Route: 048
     Dates: start: 20140424, end: 20181226
  28. ZOLEDRONIC ACID [Concomitant]
     Active Substance: ZOLEDRONIC ACID
     Indication: PROPHYLAXIS
     Dosage: 4 MG/3 MONTHS
     Route: 041
     Dates: start: 20160202
  29. CEFTRIAXONE SODIUM. [Concomitant]
     Active Substance: CEFTRIAXONE SODIUM
     Indication: GINGIVITIS
     Dosage: UNK UNK, UNKNOWN FREQ.
     Route: 041
     Dates: start: 20170226, end: 20170302
  30. XYLOCAINE WITH EPINEPHRINE [Concomitant]
     Active Substance: EPINEPHRINE BITARTRATE\LIDOCAINE HYDROCHLORIDE
     Indication: TOOTH EXTRACTION
     Dosage: UNK UNK, UNKNOWN FREQ.
     Route: 061
     Dates: start: 20171201, end: 20171201
  31. MEIACT [Concomitant]
     Active Substance: CEFDITOREN PIVOXIL
     Indication: INFECTION PROPHYLAXIS
     Route: 048
     Dates: start: 20171201, end: 20171207
  32. BENZETHONIUM CHLORIDE [Concomitant]
     Active Substance: BENZETHONIUM CHLORIDE
     Indication: GINGIVITIS
     Dosage: APPROPRIATE DOSE, THRICE DAILY
     Route: 061
     Dates: start: 20180303, end: 20180322
  33. LACTEC [Concomitant]
     Active Substance: CALCIUM CHLORIDE ANHYDROUS\POTASSIUM CHLORIDE\SODIUM CHLORIDE\SODIUM LACTATE
     Indication: ANAEMIA
     Dosage: UNK UNK, UNKNOWN FREQ.
     Route: 041
     Dates: start: 20180322, end: 20180323
  34. FOLIAMIN [Concomitant]
     Active Substance: FOLIC ACID
     Indication: ANAEMIA
     Dosage: UNK UNK, UNKNOWN FREQ.
     Route: 048
     Dates: start: 20180322, end: 20180426
  35. FOLIAMIN [Concomitant]
     Active Substance: FOLIC ACID
     Indication: ANAEMIA PROPHYLAXIS
  36. CELECOX [Concomitant]
     Active Substance: CELECOXIB
     Route: 048
     Dates: start: 20181227, end: 20190912
  37. SOLDEM 3A [Concomitant]
     Active Substance: CARBOHYDRATES\POTASSIUM CHLORIDE\SODIUM CHLORIDE\SODIUM LACTATE
     Indication: ANAEMIA
     Dosage: UNK UNK, UNKNOWN FREQ.
     Route: 041
     Dates: start: 20180322, end: 20180322
  38. HUMAN RED BLOOD CELLS [Concomitant]
     Active Substance: HUMAN RED BLOOD CELL
     Indication: ANAEMIA
     Route: 041
     Dates: start: 20180322, end: 20180324
  39. ENZALUTAMIDE [Suspect]
     Active Substance: ENZALUTAMIDE
     Indication: HORMONE-REFRACTORY PROSTATE CANCER
     Route: 048
     Dates: start: 20170811, end: 20190912
  40. METOLATE [Suspect]
     Active Substance: METHOTREXATE
     Route: 048
     Dates: start: 20180426, end: 20180629
  41. CELECOX [Concomitant]
     Active Substance: CELECOXIB
     Dosage: UNK, UNKNOWN FREQ.
     Route: 048
     Dates: start: 20190918, end: 20191017
  42. REBAMIPIDE [Concomitant]
     Active Substance: REBAMIPIDE
     Indication: GASTRITIS PROPHYLAXIS
     Dosage: UNK UNK, UNKNOWN FREQ.
     Route: 048
     Dates: start: 20171201, end: 20171205
  43. FOLIAMIN [Concomitant]
     Active Substance: FOLIC ACID
     Indication: PANCYTOPENIA
     Dosage: UNK UNK, UNKNOWN FREQ.
     Route: 048
     Dates: start: 20180427, end: 20180804

REACTIONS (14)
  - Fatigue [Recovered/Resolved]
  - Pneumonia pneumococcal [Recovered/Resolved]
  - White blood cell count decreased [Recovered/Resolved]
  - Contusion [Recovered/Resolved]
  - Anaemia [Recovered/Resolved]
  - Pancytopenia [Recovered/Resolved]
  - Dizziness [Recovered/Resolved]
  - Weight decreased [Not Recovered/Not Resolved]
  - Gingivitis [Recovered/Resolved]
  - Hypertension [Recovering/Resolving]
  - Infected dermal cyst [Recovered/Resolved]
  - Fall [Recovered/Resolved]
  - Seborrhoeic keratosis [Recovered/Resolved]
  - Dental caries [Recovered/Resolved]

NARRATIVE: CASE EVENT DATE: 20171003
